FAERS Safety Report 18554826 (Version 1)
Quarter: 2020Q4

REPORT INFORMATION
  Report Type: Spontaneous
  Country: US (occurrence: US)
  Receive Date: 20201127
  Receipt Date: 20201127
  Transmission Date: 20210114
  Serious: No
  Sender: FDA-Public Use
  Company Number: US-SA-2020SA338306

PATIENT

DRUGS (3)
  1. NASACORT [Suspect]
     Active Substance: TRIAMCINOLONE ACETONIDE
     Indication: NASAL CONGESTION
     Dosage: UNK
     Route: 045
     Dates: start: 20201014
  2. FLUTICASONE. [Concomitant]
     Active Substance: FLUTICASONE
     Dosage: UNK
     Route: 065
  3. AFRIN [OXYMETAZOLINE] [Concomitant]
     Dosage: UNK
     Route: 065

REACTIONS (1)
  - Drug ineffective [Unknown]
